FAERS Safety Report 7417219-8 (Version None)
Quarter: 2011Q2

REPORT INFORMATION
  Report Type: 
  Country: None (occurrence: None)
  Receive Date: 20110415
  Receipt Date: 20110405
  Transmission Date: 20111010
  Serious: Yes (Hospitalization, Other)
  Sender: FDA-Public Use
  Company Number: GB-JNJFOC-20110401979

PATIENT
  Age: 39 Year
  Sex: Female
  Weight: 77 kg

DRUGS (6)
  1. CEPHALEXIN [Concomitant]
     Indication: BRONCHITIS
     Route: 065
  2. NICOTINE PATCH [Suspect]
     Indication: PRODUCT USED FOR UNKNOWN INDICATION
     Route: 064
  3. ADRENERGICS, INHALANTS [Concomitant]
     Indication: PRODUCT USED FOR UNKNOWN INDICATION
     Route: 065
  4. CIPROFLOXACIN [Concomitant]
     Indication: BRONCHITIS
     Route: 065
  5. NICORETTE [Suspect]
     Indication: SMOKING CESSATION THERAPY
     Route: 055
  6. STEROIDS NOS [Concomitant]
     Indication: PRODUCT USED FOR UNKNOWN INDICATION
     Route: 065

REACTIONS (6)
  - CIRCULATORY COLLAPSE [None]
  - ANXIETY [None]
  - FEELING ABNORMAL [None]
  - DEPRESSION [None]
  - DYSPNOEA [None]
  - PALPITATIONS [None]
